FAERS Safety Report 12289376 (Version 1)
Quarter: 2016Q2

REPORT INFORMATION
  Report Type: Spontaneous
  Country: US (occurrence: US)
  Receive Date: 20160421
  Receipt Date: 20160421
  Transmission Date: 20160815
  Serious: Yes (Hospitalization, Other)
  Sender: FDA-Public Use
  Company Number: US-PAR PHARMACEUTICAL COMPANIES-2016SCPR015358

PATIENT

DRUGS (5)
  1. XOPENEX [Concomitant]
     Active Substance: LEVALBUTEROL HYDROCHLORIDE
     Indication: ASTHMA
     Dosage: UNK UNK, PRN
     Route: 055
  2. DULERA [Concomitant]
     Active Substance: FORMOTEROL FUMARATE DIHYDRATE\MOMETASONE FUROATE
     Indication: ASTHMA
     Dosage: TWO PUMPS, OD
     Route: 048
  3. ACCOLATE [Suspect]
     Active Substance: ZAFIRLUKAST
     Indication: ASTHMA
     Dosage: 1 DF, BID
     Route: 048
     Dates: end: 201602
  4. ACCOLATE [Suspect]
     Active Substance: ZAFIRLUKAST
     Dosage: 1 DF, BID
     Route: 048
     Dates: start: 20160203, end: 201603
  5. PROPRANOLOL [Concomitant]
     Active Substance: PROPRANOLOL\PROPRANOLOL HYDROCHLORIDE
     Indication: PRODUCT USED FOR UNKNOWN INDICATION
     Dosage: UNK, UNKNOWN
     Route: 065

REACTIONS (5)
  - Dyspnoea [Recovering/Resolving]
  - Ear pain [Recovering/Resolving]
  - Middle insomnia [Recovering/Resolving]
  - Expired product administered [Unknown]
  - Lymph node pain [Recovering/Resolving]

NARRATIVE: CASE EVENT DATE: 20160203
